FAERS Safety Report 7110986-2 (Version None)
Quarter: 2010Q4

REPORT INFORMATION
  Report Type: 
  Country: None (occurrence: None)
  Receive Date: 20101108
  Receipt Date: 20101029
  Transmission Date: 20110411
  Serious: Yes (Hospitalization)
  Sender: FDA-Public Use
  Company Number: B0682156A

PATIENT
  Age: 55 Year
  Sex: Male

DRUGS (1)
  1. FLUTICASONE PROPIONATE [Suspect]
     Indication: NASAL CONGESTION
     Dosage: NASAL SPRAY
     Route: 045

REACTIONS (21)
  - ADRENAL INSUFFICIENCY [None]
  - ADRENOCORTICAL INSUFFICIENCY ACUTE [None]
  - ANTEROGRADE AMNESIA [None]
  - ASTHENIA [None]
  - ATRIAL FIBRILLATION [None]
  - BRADYPHRENIA [None]
  - DIARRHOEA [None]
  - DISORIENTATION [None]
  - FAECAL INCONTINENCE [None]
  - GASTROENTERITIS [None]
  - HYPOTENSION [None]
  - HYPOTONIA [None]
  - HYPOVOLAEMIA [None]
  - LETHARGY [None]
  - MENTAL STATUS CHANGES [None]
  - POSTICTAL STATE [None]
  - RENAL FAILURE ACUTE [None]
  - RETROGRADE AMNESIA [None]
  - RHABDOMYOLYSIS [None]
  - URINARY INCONTINENCE [None]
  - VOMITING [None]
